FAERS Safety Report 22231479 (Version 2)
Quarter: 2025Q1

REPORT INFORMATION
  Report Type: Report from Study
  Country: ES (occurrence: ES)
  Receive Date: 20230420
  Receipt Date: 20250306
  Transmission Date: 20250408
  Serious: Yes (Death, Other)
  Sender: AUROBINDO
  Company Number: ES-TAKEDA-2023TUS033892

PATIENT

DRUGS (5)
  1. BORTEZOMIB [Suspect]
     Active Substance: BORTEZOMIB
     Indication: Plasma cell myeloma
     Route: 058
  2. BORTEZOMIB [Suspect]
     Active Substance: BORTEZOMIB
     Route: 058
  3. BORTEZOMIB [Suspect]
     Active Substance: BORTEZOMIB
     Route: 058
  4. MELPHALAN [Suspect]
     Active Substance: MELPHALAN
     Indication: Plasma cell myeloma
     Route: 048
  5. PREDNISONE [Suspect]
     Active Substance: PREDNISONE
     Indication: Plasma cell myeloma
     Route: 048

REACTIONS (2)
  - Gastrointestinal haemorrhage [Fatal]
  - Thrombocytopenia [Fatal]
